FAERS Safety Report 22161099 (Version 1)
Quarter: 2023Q1

REPORT INFORMATION
  Report Type: Report from Study
  Country: US (occurrence: US)
  Receive Date: 20230331
  Receipt Date: 20230331
  Transmission Date: 20230417
  Serious: Yes (Other)
  Sender: FDA-Public Use
  Company Number: US-002147023-NVSC2023US069405

PATIENT
  Age: 33 Year
  Sex: Female

DRUGS (1)
  1. COSENTYX [Suspect]
     Active Substance: SECUKINUMAB
     Indication: Product used for unknown indication
     Dosage: 150 MG, QMO
     Route: 058
     Dates: start: 20221101, end: 20230101

REACTIONS (5)
  - Product dose omission issue [Unknown]
  - Condition aggravated [Unknown]
  - Arthralgia [Unknown]
  - Inflammation [Unknown]
  - Skin plaque [Unknown]

NARRATIVE: CASE EVENT DATE: 20230301
